FAERS Safety Report 14890035 (Version 2)
Quarter: 2018Q2

REPORT INFORMATION
  Report Type: Spontaneous
  Country: US (occurrence: US)
  Receive Date: 20180514
  Receipt Date: 20180625
  Transmission Date: 20180711
  Serious: Yes (Other)
  Sender: FDA-Public Use
  Company Number: US-ROCHE-2117288

PATIENT
  Sex: Female

DRUGS (12)
  1. KINERET [Concomitant]
     Active Substance: ANAKINRA
  2. ENBREL [Suspect]
     Active Substance: ETANERCEPT
     Indication: RHEUMATOID ARTHRITIS
     Dosage: VIAL
     Route: 065
  3. ORENCIA [Suspect]
     Active Substance: ABATACEPT
     Indication: RHEUMATOID ARTHRITIS
     Route: 065
  4. HUMIRA [Suspect]
     Active Substance: ADALIMUMAB
     Indication: RHEUMATOID ARTHRITIS
     Route: 065
  5. KEVZARA [Concomitant]
     Active Substance: SARILUMAB
  6. PLAQUENIL [Concomitant]
     Active Substance: HYDROXYCHLOROQUINE SULFATE
  7. ACTEMRA [Suspect]
     Active Substance: TOCILIZUMAB
     Indication: RHEUMATOID ARTHRITIS
     Route: 065
  8. METHOTREXATE. [Suspect]
     Active Substance: METHOTREXATE
     Indication: RHEUMATOID ARTHRITIS
     Route: 048
  9. REMICADE [Suspect]
     Active Substance: INFLIXIMAB
     Indication: RHEUMATOID ARTHRITIS
     Route: 065
  10. CIMZIA [Suspect]
     Active Substance: CERTOLIZUMAB PEGOL
     Indication: RHEUMATOID ARTHRITIS
     Route: 065
  11. XELJANZ XR [Concomitant]
     Active Substance: TOFACITINIB CITRATE
     Route: 048
  12. SARILUMAB [Concomitant]
     Active Substance: SARILUMAB

REACTIONS (10)
  - Treatment failure [Unknown]
  - Condition aggravated [Unknown]
  - Pain in extremity [Unknown]
  - Joint dislocation [Unknown]
  - Leukopenia [Unknown]
  - Toxicity to various agents [Unknown]
  - Hepatitis [Unknown]
  - Musculoskeletal disorder [Unknown]
  - Synovitis [Unknown]
  - Osteoarthritis [Unknown]
